FAERS Safety Report 4866340-7 (Version None)
Quarter: 2005Q4

REPORT INFORMATION
  Report Type: 
  Country: None (occurrence: None)
  Receive Date: 20051221
  Receipt Date: 20051209
  Transmission Date: 20060501
  Serious: Yes (Other)
  Sender: FDA-Public Use
  Company Number: 2005167987

PATIENT
  Age: 64 Year
  Sex: Female
  Weight: 61.2356 kg

DRUGS (4)
  1. ZMAX [Suspect]
     Indication: BRONCHITIS
     Dosage: (ONCE),
     Dates: start: 20051115, end: 20051115
  2. CORZIDE ^SQUIBB^ (BENDROFLUMETHIAZIDE) [Concomitant]
  3. DIOVAN [Concomitant]
  4. CARDURA [Concomitant]

REACTIONS (3)
  - CHEST DISCOMFORT [None]
  - DYSPNOEA [None]
  - MYALGIA [None]
